FAERS Safety Report 10040106 (Version 2)
Quarter: 2014Q1

REPORT INFORMATION
  Report Type: Report from Study
  Country: AR (occurrence: AR)
  Receive Date: 20140326
  Receipt Date: 20140326
  Transmission Date: 20141002
  Serious: Yes (Death, Hospitalization)
  Sender: FDA-Public Use
  Company Number: AR-US-EMD SERONO, INC.-7240305

PATIENT
  Age: 77 Year
  Sex: Female

DRUGS (1)
  1. REBIF [Suspect]
     Indication: MULTIPLE SCLEROSIS
     Dates: start: 20000223, end: 2014

REACTIONS (5)
  - Death [Fatal]
  - Activities of daily living impaired [Unknown]
  - Infected skin ulcer [Recovering/Resolving]
  - Hypertension [Not Recovered/Not Resolved]
  - Pyrexia [Unknown]
